FAERS Safety Report 24829872 (Version 2)
Quarter: 2025Q1

REPORT INFORMATION
  Report Type: Report from Study
  Country: KR (occurrence: KR)
  Receive Date: 20250110
  Receipt Date: 20250116
  Transmission Date: 20250409
  Serious: Yes (Death)
  Sender: AMGEN
  Company Number: KR-AMGEN-KORNI2025003004

PATIENT
  Age: 60 Year
  Sex: Male

DRUGS (2)
  1. TARLATAMAB [Suspect]
     Active Substance: TARLATAMAB
     Indication: Small cell lung cancer recurrent
     Route: 040
     Dates: start: 20241030
  2. TARLATAMAB [Suspect]
     Active Substance: TARLATAMAB
     Dosage: 10 MILLIGRAM, Q2WK
     Route: 040
     Dates: end: 20241217

REACTIONS (1)
  - Death [Fatal]

NARRATIVE: CASE EVENT DATE: 20241222
